FAERS Safety Report 5417373-3 (Version None)
Quarter: 2007Q3

REPORT INFORMATION
  Report Type: 
  Country: None (occurrence: None)
  Receive Date: 20070816
  Receipt Date: 20070807
  Transmission Date: 20080115
  Serious: Yes (Death)
  Sender: FDA-Public Use
  Company Number: SE-ABBOTT-07P-150-0368016-00

PATIENT
  Age: 80 Year
  Sex: Female

DRUGS (10)
  1. WARFARIN [Suspect]
     Indication: DEEP VEIN THROMBOSIS
     Dosage: NOT REPORTED
  2. PARACETAMOL [Interacting]
     Indication: DRUG USE FOR UNKNOWN INDICATION
  3. PARACETAMOL [Interacting]
  4. PROPOXYPHENE HYDROCHLORIDE [Interacting]
     Indication: DRUG USE FOR UNKNOWN INDICATION
     Route: 048
  5. FOSFOMYCIN TROMETAMOL [Concomitant]
     Indication: DRUG USE FOR UNKNOWN INDICATION
     Dosage: NOT REPORTED
  6. AMILORIDE HYDROCHLORIDE [Concomitant]
     Indication: DRUG USE FOR UNKNOWN INDICATION
     Dosage: NOT REPORTED
  7. FUROSEMIDE [Concomitant]
     Indication: DRUG USE FOR UNKNOWN INDICATION
     Dosage: NOT REPORTED
  8. ESTRIOL [Concomitant]
     Indication: DRUG USE FOR UNKNOWN INDICATION
     Dosage: NOT REPORTED
  9. METHENAMINE HIPPURATE [Concomitant]
     Indication: DRUG USE FOR UNKNOWN INDICATION
     Dosage: NOT REPORTED
  10. LACTULOSE [Concomitant]
     Indication: DRUG USE FOR UNKNOWN INDICATION
     Dosage: NOT REPORTED

REACTIONS (2)
  - CEREBRAL HAEMORRHAGE [None]
  - DRUG INTERACTION [None]
